FAERS Safety Report 17297226 (Version 1)
Quarter: 2020Q1

REPORT INFORMATION
  Report Type: Spontaneous
  Country: DK (occurrence: DK)
  Receive Date: 20200121
  Receipt Date: 20200121
  Transmission Date: 20200409
  Serious: Yes (Hospitalization)
  Sender: FDA-Public Use
  Company Number: DK-BAUSCH-BL-2020-000744

PATIENT
  Age: 52 Year
  Sex: Male
  Weight: 94.7 kg

DRUGS (16)
  1. PARACETAMOL [Concomitant]
     Active Substance: ACETAMINOPHEN
     Indication: PAIN
  2. DEXAMETHASONE. [Suspect]
     Active Substance: DEXAMETHASONE
     Route: 048
     Dates: start: 20190712, end: 20190730
  3. VELCADE [Suspect]
     Active Substance: BORTEZOMIB
     Indication: PLASMA CELL MYELOMA
     Dosage: CYCLE 3 DAY 11
     Route: 058
     Dates: start: 20190712
  4. INNOHEP [Concomitant]
     Active Substance: TINZAPARIN SODIUM
     Indication: DEEP VEIN THROMBOSIS
     Route: 058
     Dates: start: 20190523
  5. CLINDAMYCIN. [Concomitant]
     Active Substance: CLINDAMYCIN
     Indication: HORDEOLUM
     Route: 048
     Dates: start: 20190614, end: 20190618
  6. PANTOLOC [Concomitant]
     Active Substance: PANTOPRAZOLE SODIUM
     Indication: GASTROOESOPHAGEAL REFLUX DISEASE
     Route: 048
     Dates: start: 20190531
  7. PARACETAMOL [Concomitant]
     Active Substance: ACETAMINOPHEN
     Indication: DEEP VEIN THROMBOSIS
     Route: 048
     Dates: start: 20190523
  8. MAGNESIUM OXIDE. [Concomitant]
     Active Substance: MAGNESIUM OXIDE
     Indication: CONSTIPATION
     Dosage: FREQUENCY: AS NECESSARY
     Route: 048
     Dates: start: 20190520
  9. ACYCLOVIR. [Concomitant]
     Active Substance: ACYCLOVIR
     Indication: HERPES ZOSTER
     Route: 048
     Dates: start: 20190627
  10. DEXAMETHASONE. [Suspect]
     Active Substance: DEXAMETHASONE
     Indication: PLASMA CELL MYELOMA
     Dosage: PAUSED ON DAY 7 OF C3 (04/JUL/2019)
     Route: 048
     Dates: start: 20190502, end: 20190802
  11. ACYCLOVIR. [Concomitant]
     Active Substance: ACYCLOVIR
     Route: 048
     Dates: start: 20190502, end: 20190616
  12. VELCADE [Suspect]
     Active Substance: BORTEZOMIB
     Dosage: 01/JUL/2019, 12/JUL/2019. PAUSED ON DAY 8 AND 11 OF CYCLE 3. DELAYED UNTIL 12/JUL/2019 AND AGAIN ON
     Route: 058
     Dates: start: 20190502, end: 201907
  13. PARACETAMOL [Concomitant]
     Active Substance: ACETAMINOPHEN
     Indication: HORDEOLUM
  14. ACETYLSALICYLIC ACID [Concomitant]
     Active Substance: ASPIRIN
     Indication: THROMBOSIS PROPHYLAXIS
     Route: 048
     Dates: start: 20190502, end: 20190524
  15. CHLORAMPHENICOL [Concomitant]
     Active Substance: CHLORAMPHENICOL
     Indication: HORDEOLUM
     Route: 065
     Dates: start: 20190606
  16. LENALIDOMIDE [Suspect]
     Active Substance: LENALIDOMIDE
     Indication: PLASMA CELL MYELOMA
     Route: 048
     Dates: start: 20190502, end: 20190614

REACTIONS (2)
  - Non-alcoholic steatohepatitis [Recovered/Resolved with Sequelae]
  - Hepatic function abnormal [Recovered/Resolved with Sequelae]

NARRATIVE: CASE EVENT DATE: 20190614
